FAERS Safety Report 5400924-2 (Version None)
Quarter: 2007Q3

REPORT INFORMATION
  Report Type: 
  Country: None (occurrence: None)
  Receive Date: 20070730
  Receipt Date: 20070111
  Transmission Date: 20080115
  Serious: No
  Sender: FDA-Public Use
  Company Number: A0633764A

PATIENT
  Age: 20 Month
  Sex: Female
  Weight: 9.8 kg

DRUGS (2)
  1. ZANTAC 150 [Suspect]
     Dosage: 1.5TSP TWICE PER DAY
     Route: 048
     Dates: start: 20061227, end: 20070101
  2. NO CONCURRENT MEDICATION [Concomitant]

REACTIONS (9)
  - ABNORMAL FAECES [None]
  - DIARRHOEA [None]
  - EPISTAXIS [None]
  - FAECALOMA [None]
  - FAECES DISCOLOURED [None]
  - FAECES HARD [None]
  - MEDICATION ERROR [None]
  - NASAL DRYNESS [None]
  - OVERDOSE [None]
